FAERS Safety Report 6469196-4 (Version None)
Quarter: 2009Q4

REPORT INFORMATION
  Report Type: 
  Country: None (occurrence: None)
  Receive Date: 20091203
  Receipt Date: 20071101
  Transmission Date: 20100525
  Serious: Yes (Hospitalization, Other)
  Sender: FDA-Public Use
  Company Number: US-LLY01-US200708005368

PATIENT
  Age: 61 Year
  Sex: Female

DRUGS (2)
  1. GEMZAR [Suspect]
     Indication: OVARIAN CANCER
     Dosage: UNK, UNK
  2. LEVAQUIN [Concomitant]
     Dosage: 500 MG, DAILY (1/D)
     Route: 042
     Dates: start: 20070818

REACTIONS (7)
  - CELLULITIS [None]
  - ERYTHEMA [None]
  - GENERALISED OEDEMA [None]
  - MENTAL STATUS CHANGES [None]
  - OEDEMA PERIPHERAL [None]
  - PRURITUS [None]
  - RASH [None]
